FAERS Safety Report 10010967 (Version 1)
Quarter: 2014Q1

REPORT INFORMATION
  Report Type: Spontaneous
  Country: JP (occurrence: None)
  Receive Date: 20140311
  Receipt Date: 20140311
  Transmission Date: 20141002
  Serious: Yes (Life-Threatening, Hospitalization, Other)
  Sender: FDA-Public Use
  Company Number: CO-OR-JP-2014-022

PATIENT
  Age: 44 Year
  Sex: Male

DRUGS (1)
  1. PREDNISOLONE (PREDNISOLONE) [Suspect]
     Indication: NEPHROTIC SYNDROME

REACTIONS (5)
  - Chest pain [None]
  - Electrocardiogram ST segment elevation [None]
  - Muscle spasms [None]
  - Coronary artery dissection [None]
  - Iatrogenic injury [None]
